FAERS Safety Report 4829806-1 (Version None)
Quarter: 2005Q4

REPORT INFORMATION
  Report Type: 
  Country: None (occurrence: None)
  Receive Date: 20051028
  Receipt Date: 20050825
  Transmission Date: 20060501
  Serious: No
  Sender: FDA-Public Use
  Company Number: US147874

PATIENT
  Sex: Male

DRUGS (26)
  1. SENSIPAR [Suspect]
     Indication: HYPERPARATHYROIDISM SECONDARY
     Dosage: 30 MG
     Dates: start: 20050719
  2. EPOGEN [Suspect]
  3. ALLOPURINOL [Concomitant]
  4. AMIODARONE [Concomitant]
  5. ASPIRIN [Concomitant]
  6. AMITRIPTYLINE HCL [Concomitant]
  7. CEFAZOLIN SODIUM [Concomitant]
  8. ATENOLOL [Concomitant]
  9. LORAZEPAM [Concomitant]
  10. DIPHENHYDRAMINE HCL [Concomitant]
  11. WARFARIN SODIUM [Concomitant]
  12. LOSARTAN POTASSIUM [Concomitant]
  13. CLONAZEPAM [Concomitant]
  14. DIGOXIN [Concomitant]
  15. GEMFIBROZIL [Concomitant]
  16. NEPHRO-CAPS [Concomitant]
  17. GABAPENTIN [Concomitant]
  18. PANTOPRAZOLE SODIUM [Concomitant]
  19. SEVELAMER HCL [Concomitant]
  20. SIMVASTATIN [Concomitant]
  21. LISINOPRIL [Concomitant]
  22. CETIRIZINE HYDROCHLORIDE [Concomitant]
  23. TOCOPHEROL CONCENTRATE CAP [Concomitant]
  24. FENOFIBRATE [Concomitant]
  25. IRON DEXTRAN [Concomitant]
  26. VENOFER [Concomitant]

REACTIONS (1)
  - BLOOD PARATHYROID HORMONE INCREASED [None]
